FAERS Safety Report 21810589 (Version 1)
Quarter: 2023Q1

REPORT INFORMATION
  Report Type: Report from Study
  Country: US (occurrence: US)
  Receive Date: 20230103
  Receipt Date: 20230103
  Transmission Date: 20230417
  Serious: No
  Sender: FDA-Public Use
  Company Number: US-ABBVIE-4248012

PATIENT
  Sex: Male

DRUGS (1)
  1. RINVOQ [Suspect]
     Active Substance: UPADACITINIB
     Indication: Product used for unknown indication
     Route: 048

REACTIONS (9)
  - Scratch [Unknown]
  - Latent tuberculosis [Unknown]
  - Erythema [Unknown]
  - Burning sensation [Unknown]
  - Condition aggravated [Unknown]
  - Skin disorder [Unknown]
  - Skin exfoliation [Unknown]
  - Insomnia [Unknown]
  - Pruritus [Unknown]
